FAERS Safety Report 7430355-5 (Version None)
Quarter: 2011Q2

REPORT INFORMATION
  Report Type: 
  Country: None (occurrence: None)
  Receive Date: 20110421
  Receipt Date: 20100602
  Transmission Date: 20111010
  Serious: No
  Sender: FDA-Public Use
  Company Number: US-ASTRAZENECA-2010SE25609

PATIENT
  Sex: Female
  Weight: 91.6 kg

DRUGS (1)
  1. TOPROL-XL [Suspect]
     Indication: BLOOD PRESSURE MANAGEMENT
     Route: 048

REACTIONS (3)
  - DEPRESSION [None]
  - WEIGHT INCREASED [None]
  - DEPRESSED MOOD [None]
